FAERS Safety Report 18096041 (Version 1)
Quarter: 2020Q3

REPORT INFORMATION
  Report Type: Spontaneous
  Country: BE (occurrence: BE)
  Receive Date: 20200730
  Receipt Date: 20200730
  Transmission Date: 20201103
  Serious: Yes (Other)
  Sender: FDA-Public Use
  Company Number: NVSC2020BE210414

PATIENT
  Age: 72 Year
  Sex: Female

DRUGS (17)
  1. ARIMIDEX [Suspect]
     Active Substance: ANASTROZOLE
     Indication: BREAST NEOPLASM
     Route: 065
     Dates: start: 2006
  2. FASLODEX [Suspect]
     Active Substance: FULVESTRANT
     Indication: BREAST CANCER METASTATIC
     Route: 065
  3. CYCLOPHOSPHAMIDE. [Suspect]
     Active Substance: CYCLOPHOSPHAMIDE
     Indication: BREAST NEOPLASM
     Route: 065
     Dates: start: 2006
  4. LAPATINIB [Suspect]
     Active Substance: LAPATINIB
     Indication: BREAST NEOPLASM
     Route: 065
     Dates: start: 201910
  5. TRASTUZUMAB EMTANSINE [Suspect]
     Active Substance: ADO-TRASTUZUMAB EMTANSINE
     Indication: BREAST NEOPLASM
     Route: 065
     Dates: start: 201905
  6. EPIRUBICIN [Suspect]
     Active Substance: EPIRUBICIN
     Indication: BREAST NEOPLASM
     Route: 065
     Dates: start: 2006
  7. TAMOXIFEN [Suspect]
     Active Substance: TAMOXIFEN
     Indication: BREAST NEOPLASM
     Route: 065
     Dates: start: 2006
  8. PACLITAXEL. [Suspect]
     Active Substance: PACLITAXEL
     Indication: BREAST NEOPLASM
     Route: 065
     Dates: start: 201806
  9. CAPECITABINE. [Suspect]
     Active Substance: CAPECITABINE
     Indication: BREAST NEOPLASM
     Route: 065
     Dates: start: 201907
  10. PERTUZUMAB. [Suspect]
     Active Substance: PERTUZUMAB
     Indication: BREAST NEOPLASM
     Route: 065
     Dates: start: 201806
  11. TAXOTERE [Suspect]
     Active Substance: DOCETAXEL
     Indication: BREAST NEOPLASM
     Route: 065
     Dates: start: 2006
  12. HERCEPTIN [Suspect]
     Active Substance: TRASTUZUMAB
     Indication: BREAST CANCER METASTATIC
     Dosage: NEXT DOSE ON /JUN/2018, /JUL/2019, /OCT/2019
     Route: 065
     Dates: start: 2006
  13. FEMARA [Suspect]
     Active Substance: LETROZOLE
     Indication: BREAST CANCER METASTATIC
  14. IBRANCE [Suspect]
     Active Substance: PALBOCICLIB
     Indication: BREAST CANCER METASTATIC
     Route: 065
  15. HERCEPTIN [Suspect]
     Active Substance: TRASTUZUMAB
     Indication: BREAST NEOPLASM
  16. FEMARA [Suspect]
     Active Substance: LETROZOLE
     Indication: BREAST NEOPLASM
     Route: 065
     Dates: start: 201910
  17. 5 FLUORO URACIL [Suspect]
     Active Substance: FLUOROURACIL
     Indication: BREAST NEOPLASM
     Route: 065
     Dates: start: 2006

REACTIONS (1)
  - Gastrointestinal toxicity [Unknown]
